FAERS Safety Report 7080596-4 (Version None)
Quarter: 2010Q4

REPORT INFORMATION
  Report Type: 
  Country: None (occurrence: None)
  Receive Date: 20101025
  Receipt Date: 20101014
  Transmission Date: 20110411
  Serious: Yes (Hospitalization)
  Sender: FDA-Public Use
  Company Number: 2010GW000828

PATIENT
  Age: 65 Year
  Sex: Male
  Weight: 140.6151 kg

DRUGS (10)
  1. TAMBOCOR [Suspect]
     Indication: ATRIAL FIBRILLATION
     Dosage: PO
     Route: 048
     Dates: end: 20100722
  2. SILDENAFIL CITRATE [Suspect]
     Indication: PRODUCT USED FOR UNKNOWN INDICATION
     Dosage: 20 MG; TID
     Dates: start: 20100514, end: 20100722
  3. PLACEBO [Suspect]
     Indication: PRODUCT USED FOR UNKNOWN INDICATION
     Dosage: 20 MG; TID
     Dates: start: 20100514, end: 20100722
  4. MIRAPEX [Concomitant]
  5. TORSEMIDE [Concomitant]
  6. ACE INHIBITOR NOS [Concomitant]
  7. ASPIRIN [Concomitant]
  8. WARFARIN [Concomitant]
  9. ANTIARRHYTHMIC MEDICATION NOS [Concomitant]
  10. DIABETIC AGENT NOS [Concomitant]

REACTIONS (9)
  - BLOOD PRESSURE DIASTOLIC DECREASED [None]
  - CARDIAC FAILURE [None]
  - HYPERCAPNIA [None]
  - HYPOGLYCAEMIA [None]
  - HYPOXIA [None]
  - TREATMENT NONCOMPLIANCE [None]
  - VENTRICULAR TACHYCARDIA [None]
  - VISION BLURRED [None]
  - WEIGHT INCREASED [None]
